FAERS Safety Report 4938213-2 (Version None)
Quarter: 2006Q1

REPORT INFORMATION
  Report Type: 
  Country: None (occurrence: None)
  Receive Date: 20060309
  Receipt Date: 20050315
  Transmission Date: 20060701
  Serious: Yes (Other)
  Sender: FDA-Public Use
  Company Number: US-MERCK-0503USA03125

PATIENT
  Age: 38 Year
  Sex: Male
  Weight: 105 kg

DRUGS (5)
  1. VIOXX [Suspect]
     Indication: ANALGESIC EFFECT
     Route: 048
     Dates: start: 20010915, end: 20030101
  2. VIOXX [Suspect]
     Route: 048
     Dates: start: 20010915, end: 20030101
  3. VICODIN [Concomitant]
     Route: 065
  4. NORCO [Concomitant]
     Route: 065
  5. BEXTRA [Concomitant]
     Route: 065

REACTIONS (11)
  - BLOOD PRESSURE ABNORMAL [None]
  - CARDIAC FAILURE [None]
  - CARDIOVASCULAR DISORDER [None]
  - CEREBROVASCULAR ACCIDENT [None]
  - CHEST PAIN [None]
  - HEPATOCELLULAR DAMAGE [None]
  - MYOCARDIAL INFARCTION [None]
  - PRESCRIBED OVERDOSE [None]
  - RENAL INJURY [None]
  - THROMBOSIS [None]
  - ULCER [None]
